FAERS Safety Report 8051123-X (Version None)
Quarter: 2012Q1

REPORT INFORMATION
  Report Type: 
  Country: None (occurrence: None)
  Receive Date: 20120117
  Receipt Date: 20120112
  Transmission Date: 20120608
  Serious: Yes (Other)
  Sender: FDA-Public Use
  Company Number: PHHY2011RO108923

PATIENT
  Age: 39 Year
  Sex: Male

DRUGS (5)
  1. TASIGNA [Suspect]
     Dosage: 600 MG/DAY
     Dates: start: 20100601
  2. TASIGNA [Suspect]
     Indication: CHRONIC MYELOID LEUKAEMIA
     Dosage: 800 MG
     Route: 048
  3. HYDROXYUREA [Concomitant]
     Dosage: UNK UKN, UNK
  4. TASIGNA [Suspect]
     Dosage: 400 MG/DAY
     Route: 048
  5. URSO FALK [Concomitant]
     Dosage: UNK UKN, UNK

REACTIONS (4)
  - CHEST PAIN [None]
  - ELECTROCARDIOGRAM QT PROLONGED [None]
  - BLOOD CHOLESTEROL INCREASED [None]
  - HEPATIC ENZYME INCREASED [None]
